FAERS Safety Report 9392323 (Version 2)
Quarter: 2013Q4

REPORT INFORMATION
  Report Type: Report from Study
  Country: US (occurrence: US)
  Receive Date: 20130710
  Receipt Date: 20131104
  Transmission Date: 20140711
  Serious: Yes (Other)
  Sender: FDA-Public Use
  Company Number: US-ROCHE-1246945

PATIENT
  Sex: Female

DRUGS (7)
  1. RITUXAN [Suspect]
     Indication: NEUROMYELITIS OPTICA
     Route: 042
  2. RITUXAN [Suspect]
     Route: 040
     Dates: start: 20121109
  3. RITUXAN [Suspect]
     Route: 040
     Dates: start: 20131029
  4. RITUXAN [Suspect]
     Route: 040
     Dates: start: 20131008
  5. ACETAMINOPHEN [Concomitant]
     Route: 065
  6. DIPHENHYDRAMINE HCL [Concomitant]
     Route: 065
  7. HYDROCORTISONE SODIUM SUCCINATE [Concomitant]
     Route: 065

REACTIONS (4)
  - Creatinine renal clearance increased [Not Recovered/Not Resolved]
  - Body mass index increased [Not Recovered/Not Resolved]
  - Heart rate increased [Unknown]
  - Blood pressure diastolic increased [Unknown]
